FAERS Safety Report 8333035-7 (Version None)
Quarter: 2012Q2

REPORT INFORMATION
  Report Type: 
  Country: None (occurrence: None)
  Receive Date: 20120503
  Receipt Date: 20120427
  Transmission Date: 20120825
  Serious: Yes (Death, Life-Threatening)
  Sender: FDA-Public Use
  Company Number: ES-BRISTOL-MYERS SQUIBB COMPANY-16554651

PATIENT
  Age: 79 Year
  Sex: Female

DRUGS (2)
  1. TRIAMCINOLONE ACETONIDE [Suspect]
     Indication: ARTHRALGIA
     Dosage: TRIGON-DEPOT-INJ 40 MG/ML INJECTABLE SUSPENSION 1 AMPULE 1 ML
     Route: 014
     Dates: start: 20120329
  2. MEPIVACAINE HCL [Suspect]
     Indication: ARTHRALGIA
     Dosage: 1DF: 20MG/ML INJECTABLE SOLUTION 1 AMP:2ML
     Route: 014
     Dates: start: 20120329

REACTIONS (2)
  - ARTHRITIS BACTERIAL [None]
  - SEPTIC SHOCK [None]
